FAERS Safety Report 11969658 (Version 1)
Quarter: 2016Q1

REPORT INFORMATION
  Report Type: Spontaneous
  Country: FR (occurrence: FR)
  Receive Date: 20160128
  Receipt Date: 20160128
  Transmission Date: 20160526
  Serious: Yes (Hospitalization)
  Sender: FDA-Public Use
  Company Number: FR-ASTRAZENECA-2016SE02857

PATIENT
  Age: 31045 Day
  Sex: Female

DRUGS (3)
  1. LEVOTHYROX [Concomitant]
     Active Substance: LEVOTHYROXINE
     Route: 048
  2. INEXIUM [Suspect]
     Active Substance: ESOMEPRAZOLE
     Indication: LARYNGEAL INFLAMMATION
     Route: 048
     Dates: start: 20151209, end: 20151209
  3. BILASTINE [Suspect]
     Active Substance: BILASTINE
     Indication: LARYNGEAL INFLAMMATION
     Route: 048
     Dates: start: 20151209, end: 20151209

REACTIONS (4)
  - Erythema [Recovered/Resolved]
  - Off label use [Recovered/Resolved]
  - Product use issue [Recovered/Resolved]
  - Dyspnoea [Recovered/Resolved]

NARRATIVE: CASE EVENT DATE: 20151209
